FAERS Safety Report 9792064 (Version 1)
Quarter: 2014Q1

REPORT INFORMATION
  Report Type: Spontaneous
  Country: US (occurrence: US)
  Receive Date: 20140102
  Receipt Date: 20140102
  Transmission Date: 20141002
  Serious: Yes (Hospitalization)
  Sender: FDA-Public Use
  Company Number: US-BAYER-2013-159320

PATIENT
  Age: 27 Year
  Sex: Female

DRUGS (4)
  1. YAZ [Suspect]
  2. AZITHROMYCIN [Concomitant]
     Dosage: 250 MG, UNK
  3. PROPOXYPHENE COMPOUND [Concomitant]
     Dosage: 100-650
  4. TORADOL [Concomitant]
     Indication: PAIN

REACTIONS (1)
  - Pulmonary embolism [None]
